FAERS Safety Report 13049679 (Version 1)
Quarter: 2016Q4

REPORT INFORMATION
  Report Type: Spontaneous
  Country: JP (occurrence: JP)
  Receive Date: 20161221
  Receipt Date: 20161221
  Transmission Date: 20170207
  Serious: Yes (Hospitalization)
  Sender: FDA-Public Use
  Company Number: JP-CELGENEUS-JPN-2016122302

PATIENT
  Age: 87 Year
  Sex: Male

DRUGS (1)
  1. REVLIMID [Suspect]
     Active Substance: LENALIDOMIDE
     Indication: PLASMA CELL MYELOMA
     Dosage: 5MG
     Route: 048
     Dates: start: 20101115, end: 20161124

REACTIONS (3)
  - Electrocardiogram QT prolonged [Unknown]
  - Pneumonia influenzal [Unknown]
  - Ejection fraction decreased [Unknown]

NARRATIVE: CASE EVENT DATE: 20161124
